FAERS Safety Report 20860281 (Version 1)
Quarter: 2022Q2

REPORT INFORMATION
  Report Type: Spontaneous
  Country: US (occurrence: None)
  Receive Date: 20220520
  Receipt Date: 20220520
  Transmission Date: 20220721
  Serious: Yes (Hospitalization)
  Sender: FDA-Public Use
  Company Number: None

PATIENT
  Sex: Female

DRUGS (2)
  1. MYCOPHENOLIC ACID [Suspect]
     Active Substance: MYCOPHENOLIC ACID
     Indication: Renal transplant
     Dosage: 250 MG TWICE DAILY ORAL;?
     Route: 048
     Dates: start: 20220508
  2. TACROLIMUS [Suspect]
     Active Substance: TACROLIMUS
     Indication: Renal transplant
     Dosage: 2 MG TWICE DAILY ORAL;?
     Route: 048
     Dates: start: 20220508

REACTIONS (5)
  - Urinary tract infection [None]
  - Chills [None]
  - Pyrexia [None]
  - Nausea [None]
  - Vomiting [None]
